FAERS Safety Report 5758667-1 (Version None)
Quarter: 2008Q2

REPORT INFORMATION
  Report Type: 
  Country: None (occurrence: None)
  Receive Date: 20080602
  Receipt Date: 20080519
  Transmission Date: 20081010
  Serious: Yes (Other)
  Sender: FDA-Public Use
  Company Number: 2007332502

PATIENT
  Sex: Male

DRUGS (3)
  1. NON DROWSY SUDAFED DECONGESTANT TABLETS (PSEUDOEPHEDRINE) [Suspect]
     Indication: EAR PAIN
     Dosage: 1 TABLET, ORAL
     Route: 048
     Dates: start: 20070601, end: 20070601
  2. GLUCOSAMINE (GLUCOSAMINE) [Concomitant]
  3. IBUPROFEN [Concomitant]

REACTIONS (6)
  - HALLUCINATION, VISUAL [None]
  - INITIAL INSOMNIA [None]
  - MIDDLE INSOMNIA [None]
  - NIGHTMARE [None]
  - PSYCHOMOTOR HYPERACTIVITY [None]
  - RESTLESSNESS [None]
